FAERS Safety Report 15508628 (Version 5)
Quarter: 2019Q1

REPORT INFORMATION
  Report Type: Spontaneous
  Country: US (occurrence: US)
  Receive Date: 20181016
  Receipt Date: 20190114
  Transmission Date: 20190417
  Serious: Yes (Hospitalization)
  Sender: FDA-Public Use
  Company Number: US-ACTELION-A-NJ2018-180175

PATIENT
  Age: 69 Year
  Sex: Female

DRUGS (3)
  1. OPSUMIT [Suspect]
     Active Substance: MACITENTAN
     Indication: PULMONARY ARTERIAL HYPERTENSION
     Dosage: 10 MG, QD
     Route: 048
     Dates: start: 20180907
  2. SPIRIVA [Concomitant]
     Active Substance: TIOTROPIUM BROMIDE MONOHYDRATE
     Dosage: 18 MG, 2 PUFF, QD
     Dates: start: 20181013
  3. ADCIRCA [Suspect]
     Active Substance: TADALAFIL
     Indication: PRODUCT USED FOR UNKNOWN INDICATION
     Dosage: 40 MG, QD
     Route: 065
     Dates: start: 20180918

REACTIONS (12)
  - Dyspnoea [Recovering/Resolving]
  - Chills [Recovered/Resolved]
  - Urinary tract infection [Unknown]
  - Thyroid disorder [Unknown]
  - Pulmonary oedema [Unknown]
  - Flushing [Unknown]
  - Dysuria [Unknown]
  - Peripheral coldness [Recovered/Resolved]
  - Dependence on oxygen therapy [Unknown]
  - Feeling hot [Unknown]
  - Feeling cold [Unknown]
  - Hyperhidrosis [Unknown]

NARRATIVE: CASE EVENT DATE: 20180929
